FAERS Safety Report 7264058-7 (Version None)
Quarter: 2011Q1

REPORT INFORMATION
  Report Type: 
  Country: None (occurrence: None)
  Receive Date: 20110130
  Receipt Date: 20101217
  Transmission Date: 20110831
  Serious: No
  Sender: FDA-Public Use
  Company Number: US-ABBOTT-10P-163-0692449-00

PATIENT
  Age: 72 Year
  Sex: Female

DRUGS (11)
  1. XANAX [Concomitant]
     Indication: ANXIETY
  2. OMEPRAZOLE [Concomitant]
     Indication: ABDOMINAL DISCOMFORT
  3. DARVOCET-N 100 [Concomitant]
     Indication: PAIN
  4. DICYCLOMINE [Concomitant]
     Indication: ABDOMINAL PAIN
  5. LIPITOR [Concomitant]
     Indication: BLOOD CHOLESTEROL INCREASED
  6. NASONEX [Concomitant]
     Indication: PRODUCT USED FOR UNKNOWN INDICATION
  7. AMLODIPINE [Concomitant]
     Indication: HYPERTENSION
  8. FISH OIL [Concomitant]
     Indication: VITAMIN SUPPLEMENTATION
  9. CENTRUM [Concomitant]
     Indication: VITAMIN SUPPLEMENTATION
  10. REFRESH TEARS [Concomitant]
     Indication: DRY EYE
  11. HUMIRA [Suspect]
     Indication: CROHN'S DISEASE
     Dates: start: 20100709

REACTIONS (3)
  - ABDOMINAL PAIN UPPER [None]
  - CROHN'S DISEASE [None]
  - NAUSEA [None]
